FAERS Safety Report 4962425-5 (Version None)
Quarter: 2006Q2

REPORT INFORMATION
  Report Type: 
  Country: None (occurrence: None)
  Receive Date: 20060403
  Receipt Date: 20060403
  Transmission Date: 20061013
  Serious: No
  Sender: FDA-Public Use
  Company Number: None

PATIENT
  Sex: Male
  Weight: 91.5359 kg

DRUGS (12)
  1. FORMOTEROL FUMARATE 12 MCG INHL CAP [Suspect]
     Indication: BRONCHITIS
     Dosage: 1 CAPSULE BID INH
     Route: 042
     Dates: start: 20050612, end: 20051017
  2. ALBUTEROL SULFATE AND IPRATROPIUM BROMIDE [Concomitant]
  3. ALLOPRUINOL [Concomitant]
  4. FERROUS SO4 [Concomitant]
  5. FLUNISOLIDE 250 MG/MENTHOL [Concomitant]
  6. FUROSEMIDE [Concomitant]
  7. NPH INSULIN [Concomitant]
  8. LISINOPRIL [Concomitant]
  9. OMEPRAZOLE [Concomitant]
  10. ROSIGLITAZONE MALEATE [Concomitant]
  11. SIMVASTATIN [Concomitant]
  12. TERAZOSIN HCL [Concomitant]

REACTIONS (2)
  - PHARYNGEAL OEDEMA [None]
  - RETCHING [None]
